FAERS Safety Report 26167550 (Version 1)
Quarter: 2025Q4

REPORT INFORMATION
  Report Type: Report from Study
  Country: IQ (occurrence: IQ)
  Receive Date: 20251217
  Receipt Date: 20251217
  Transmission Date: 20260118
  Serious: Yes (Other)
  Sender: ROCHE
  Company Number: IQ-ROCHE-10000458169

PATIENT

DRUGS (1)
  1. HERCEPTIN [Suspect]
     Active Substance: TRASTUZUMAB
     Indication: HER2 positive breast cancer

REACTIONS (22)
  - Fatigue [Unknown]
  - Asthenia [Unknown]
  - Myalgia [Unknown]
  - Bone pain [Unknown]
  - Headache [Unknown]
  - Decreased appetite [Unknown]
  - Gastrointestinal pain [Unknown]
  - Sleep disorder [Unknown]
  - Visual impairment [Unknown]
  - Abdominal distension [Unknown]
  - Somnolence [Unknown]
  - Hypersomnia [Unknown]
  - Cardiac disorder [Unknown]
  - Anaemia [Unknown]
  - Pruritus [Unknown]
  - Dermatitis allergic [Unknown]
  - Immunodeficiency [Unknown]
  - Hypertension [Unknown]
  - Hyperglycaemia [Unknown]
  - Renal disorder [Unknown]
  - Hypercholesterolaemia [Unknown]
  - Infusion related reaction [Unknown]
